FAERS Safety Report 16702545 (Version 1)
Quarter: 2019Q3

REPORT INFORMATION
  Report Type: Spontaneous
  Country: US (occurrence: US)
  Receive Date: 20190814
  Receipt Date: 20190814
  Transmission Date: 20191004
  Serious: No
  Sender: FDA-Public Use
  Company Number: US-HORIZON-PEN-0746-2019

PATIENT
  Age: 56 Year
  Sex: Female

DRUGS (1)
  1. PENNSAID [Suspect]
     Active Substance: DICLOFENAC SODIUM
     Indication: ARTHRALGIA
     Dosage: 1 APPLICATION BID
     Route: 061

REACTIONS (5)
  - Application site erythema [Unknown]
  - Application site exfoliation [Unknown]
  - Application site dryness [Unknown]
  - Application site swelling [Unknown]
  - Application site pruritus [Unknown]
